FAERS Safety Report 10186297 (Version 1)
Quarter: 2014Q2

REPORT INFORMATION
  Report Type: Spontaneous
  Country: US (occurrence: US)
  Receive Date: 20140521
  Receipt Date: 20140521
  Transmission Date: 20141212
  Serious: Yes (Other)
  Sender: FDA-Public Use
  Company Number: PHHY2014US061493

PATIENT
  Age: 7 Year
  Sex: Female

DRUGS (11)
  1. BASILIXIMAB [Suspect]
     Indication: IMMUNOSUPPRESSION
     Dosage: 2 DF
  2. CICLOSPORIN [Suspect]
     Indication: PROPHYLAXIS AGAINST GRAFT VERSUS HOST DISEASE
  3. METHOTREXATE [Suspect]
     Indication: PROPHYLAXIS AGAINST GRAFT VERSUS HOST DISEASE
  4. BUSULFAN [Suspect]
     Indication: IMMUNOSUPPRESSION
  5. FLUDARABIN [Suspect]
     Indication: IMMUNOSUPPRESSION
  6. CYCLOPHOSPHAMIDE [Suspect]
     Indication: IMMUNOSUPPRESSION
  7. CALCINEURIN INHIBITORS [Suspect]
     Indication: IMMUNOSUPPRESSION
  8. ACE INHIBITORS [Suspect]
  9. DIURETICS [Suspect]
  10. ANTITHYMOCYTE IMMUNOGLOBULIN [Suspect]
     Indication: IMMUNOSUPPRESSION
  11. ECULIZUMAB [Concomitant]
     Indication: IMMUNOSUPPRESSION

REACTIONS (25)
  - Thrombotic microangiopathy [Unknown]
  - Gastrointestinal haemorrhage [Unknown]
  - Pericardial effusion [Unknown]
  - Haemorrhage intracranial [Unknown]
  - Renal failure acute [Unknown]
  - Proteinuria [Unknown]
  - Hypertension [Not Recovered/Not Resolved]
  - Renal impairment [Unknown]
  - Blood creatinine increased [Unknown]
  - Eye pain [Unknown]
  - Dizziness [Unknown]
  - Paraesthesia [Unknown]
  - Mental status changes [Unknown]
  - Convulsion [Unknown]
  - Haematuria [Unknown]
  - Fluid overload [Unknown]
  - Thrombocytopenia [Unknown]
  - Oliguria [Unknown]
  - Abdominal pain [Unknown]
  - Disease progression [Unknown]
  - Graft versus host disease [Unknown]
  - Drug ineffective [Unknown]
  - Syncope [Unknown]
  - Haemolytic anaemia [Unknown]
  - Red blood cell schistocytes present [Unknown]
